FAERS Safety Report 23898819 (Version 1)
Quarter: 2024Q2

REPORT INFORMATION
  Report Type: Spontaneous
  Country: US (occurrence: US)
  Receive Date: 20240525
  Receipt Date: 20240525
  Transmission Date: 20240716
  Serious: No
  Sender: FDA-Public Use
  Company Number: US-JNJFOC-20240561687

PATIENT

DRUGS (2)
  1. MINOXIDIL [Suspect]
     Active Substance: MINOXIDIL
     Indication: Alopecia
     Route: 061
  2. OIL OF OLIVE [Concomitant]
     Indication: Product used for unknown indication
     Route: 065

REACTIONS (2)
  - Application site pruritus [Unknown]
  - Product residue present [Unknown]
